FAERS Safety Report 22332285 (Version 1)
Quarter: 2023Q2

REPORT INFORMATION
  Report Type: Spontaneous
  Country: US (occurrence: None)
  Receive Date: 20230516
  Receipt Date: 20230516
  Transmission Date: 20230721
  Serious: Yes (Life-Threatening, Hospitalization)
  Sender: FDA-Public Use
  Company Number: None

PATIENT
  Age: 57 Year
  Sex: Male

DRUGS (2)
  1. LUMASON [Suspect]
     Active Substance: SULFUR HEXAFLUORIDE
     Indication: Cardiac imaging procedure
     Dates: start: 20230311, end: 20230311
  2. LUMASON [Concomitant]
     Active Substance: SULFUR HEXAFLUORIDE
     Dates: start: 20230311, end: 20230311

REACTIONS (2)
  - Anaphylactic reaction [None]
  - Pulse absent [None]

NARRATIVE: CASE EVENT DATE: 20230311
